FAERS Safety Report 25712293 (Version 2)
Quarter: 2025Q3

REPORT INFORMATION
  Report Type: Spontaneous
  Country: EU (occurrence: None)
  Receive Date: 20250821
  Receipt Date: 20250909
  Transmission Date: 20251020
  Serious: Yes (Hospitalization)
  Sender: Harrow Health
  Company Number: NVSC2025ES128177

PATIENT
  Age: 65 Year
  Sex: Male

DRUGS (2)
  1. TOBRADEX ST [Suspect]
     Active Substance: DEXAMETHASONE\TOBRAMYCIN
     Indication: Necrotising scleritis
  2. TOBRADEX ST [Suspect]
     Active Substance: DEXAMETHASONE\TOBRAMYCIN
     Indication: Evidence based treatment

REACTIONS (1)
  - Drug ineffective [Unknown]
